FAERS Safety Report 19860109 (Version 1)
Quarter: 2021Q3

REPORT INFORMATION
  Report Type: Spontaneous
  Country: US (occurrence: US)
  Receive Date: 20210921
  Receipt Date: 20210921
  Transmission Date: 20211014
  Serious: Yes (Disabling)
  Sender: FDA-Public Use
  Company Number: None

PATIENT
  Age: 19 Year
  Sex: Male
  Weight: 65.25 kg

DRUGS (3)
  1. CLOBETASOL PROPIONATE 0.05% [Suspect]
     Active Substance: CLOBETASOL PROPIONATE
     Indication: ECZEMA
  2. ZYRTEC [Concomitant]
     Active Substance: CETIRIZINE HYDROCHLORIDE
  3. HYDROCORTISONE 1% [Suspect]
     Active Substance: HYDROCORTISONE
     Indication: ECZEMA

REACTIONS (15)
  - Dry skin [None]
  - Feeling cold [None]
  - Pruritus [None]
  - Erythema [None]
  - Quality of life decreased [None]
  - Hot flush [None]
  - Disease recurrence [None]
  - Skin weeping [None]
  - Burning sensation [None]
  - Skin exfoliation [None]
  - Illness [None]
  - Steroid withdrawal syndrome [None]
  - Product measured potency issue [None]
  - Eczema [None]
  - Rash [None]
